FAERS Safety Report 17011813 (Version 1)
Quarter: 2019Q4

REPORT INFORMATION
  Report Type: Spontaneous
  Country: KR (occurrence: KR)
  Receive Date: 20191108
  Receipt Date: 20191108
  Transmission Date: 20200122
  Serious: Yes (Other)
  Sender: FDA-Public Use
  Company Number: KR-FRESENIUS KABI-FK201912357

PATIENT
  Age: 37 Year
  Sex: Female

DRUGS (8)
  1. ATROPINE (MANUFACTURER UNKNOWN) [Suspect]
     Active Substance: ATROPINE
     Indication: ANAESTHESIA
     Dosage: UNKNOWN
     Route: 065
  2. PROPOFOL (MANUFACTURER UNKNOWN) [Suspect]
     Active Substance: PROPOFOL
     Indication: ANAESTHESIA
     Route: 065
  3. PREDNISOLONE. [Suspect]
     Active Substance: PREDNISOLONE
     Indication: IN VITRO FERTILISATION
     Route: 048
  4. GENTAMICIN. [Concomitant]
     Active Substance: GENTAMICIN
     Indication: IN VITRO FERTILISATION
     Route: 065
  5. PROGESTERONE INJECTION USP [Suspect]
     Active Substance: PROGESTERONE
     Indication: IN VITRO FERTILISATION
     Route: 030
  6. RANITIDINE. [Concomitant]
     Active Substance: RANITIDINE
     Indication: IN VITRO FERTILISATION
     Route: 065
  7. CEFUROXIME. [Concomitant]
     Active Substance: CEFUROXIME
     Indication: IN VITRO FERTILISATION
     Route: 065
  8. KETOROLAC [Concomitant]
     Active Substance: KETOROLAC TROMETHAMINE
     Indication: IN VITRO FERTILISATION
     Route: 065

REACTIONS (1)
  - Myasthenia gravis [Recovered/Resolved]
